FAERS Safety Report 7801536-3 (Version None)
Quarter: 2011Q4

REPORT INFORMATION
  Report Type: 
  Country: None (occurrence: None)
  Receive Date: 20111007
  Receipt Date: 20110928
  Transmission Date: 20120403
  Serious: Yes (Other)
  Sender: FDA-Public Use
  Company Number: US-JNJFOC-20060307123

PATIENT
  Sex: Male
  Weight: 90.72 kg

DRUGS (6)
  1. RISPERDAL [Suspect]
     Indication: BIPOLAR DISORDER
     Route: 065
     Dates: start: 19991101
  2. RISPERDAL [Suspect]
     Indication: DEPRESSION
     Route: 065
     Dates: start: 19991101
  3. RISPERDAL [Suspect]
     Indication: ANXIETY
     Route: 065
     Dates: start: 19991101
  4. SEROQUEL [Suspect]
     Indication: ANXIETY
     Route: 065
  5. SEROQUEL [Suspect]
     Indication: DEPRESSION
     Route: 065
  6. SEROQUEL [Suspect]
     Indication: BIPOLAR DISORDER
     Route: 065

REACTIONS (3)
  - NEUROPATHY PERIPHERAL [None]
  - INJURY [None]
  - TYPE 2 DIABETES MELLITUS [None]
